FAERS Safety Report 13971749 (Version 1)
Quarter: 2017Q3

REPORT INFORMATION
  Report Type: Spontaneous
  Country: US (occurrence: US)
  Receive Date: 20170914
  Receipt Date: 20170914
  Transmission Date: 20171128
  Serious: No
  Sender: FDA-Public Use
  Company Number: US-ASTELLAS-2017US015592

PATIENT
  Sex: Male

DRUGS (2)
  1. RADIUM [Concomitant]
     Active Substance: RADIUM
     Indication: PRODUCT USED FOR UNKNOWN INDICATION
     Dosage: UNK UNK, UNKNOWN FREQ.
     Route: 065
  2. XTANDI [Suspect]
     Active Substance: ENZALUTAMIDE
     Indication: PROSTATE CANCER
     Route: 048
     Dates: start: 20170111

REACTIONS (14)
  - Balance disorder [Unknown]
  - Swelling [Unknown]
  - Hot flush [Unknown]
  - Fatigue [Unknown]
  - Treatment noncompliance [Unknown]
  - Inflammation [Unknown]
  - Dizziness [Unknown]
  - Asthenia [Unknown]
  - Vision blurred [Unknown]
  - Rheumatoid arthritis [Unknown]
  - Abdominal pain [Unknown]
  - Tremor [Unknown]
  - Rhinorrhoea [Unknown]
  - Peripheral swelling [Unknown]
